FAERS Safety Report 6902990-1 (Version None)
Quarter: 2010Q3

REPORT INFORMATION
  Report Type: 
  Country: None (occurrence: None)
  Receive Date: 20100803
  Receipt Date: 20080619
  Transmission Date: 20110219
  Serious: No
  Sender: FDA-Public Use
  Company Number: US-PFIZER INC-2008044714

PATIENT
  Sex: Male
  Weight: 54.4 kg

DRUGS (14)
  1. LYRICA [Suspect]
     Indication: PHANTOM PAIN
     Route: 048
     Dates: start: 20080301
  2. LYRICA [Suspect]
     Indication: PAIN IN EXTREMITY
  3. DOXAZOSIN MESILATE [Concomitant]
     Route: 048
  4. SIMVASTATIN [Concomitant]
     Route: 048
  5. OMEPRAZOLE [Concomitant]
     Route: 048
  6. FLUOXETINE HCL [Concomitant]
     Route: 048
  7. DILTIA XT [Concomitant]
     Route: 048
  8. AMBIEN [Concomitant]
     Route: 048
  9. BACTRIM [Concomitant]
     Route: 048
  10. PLAVIX [Concomitant]
     Route: 048
  11. METFORMIN HYDROCHLORIDE [Concomitant]
     Route: 048
  12. RANITIDINE [Concomitant]
     Route: 048
  13. ALL OTHER THERAPEUTIC PRODUCTS [Concomitant]
     Route: 048
  14. VERAMYST [Concomitant]

REACTIONS (8)
  - DIZZINESS [None]
  - DRUG EFFECT DECREASED [None]
  - FEELING DRUNK [None]
  - MENTAL IMPAIRMENT [None]
  - OEDEMA PERIPHERAL [None]
  - PERFORMANCE STATUS DECREASED [None]
  - SEDATION [None]
  - WEIGHT INCREASED [None]
